FAERS Safety Report 9389953 (Version 1)
Quarter: 2013Q3

REPORT INFORMATION
  Report Type: Spontaneous
  Country: US (occurrence: US)
  Receive Date: 20130708
  Receipt Date: 20130708
  Transmission Date: 20140515
  Serious: Yes (Other)
  Sender: FDA-Public Use
  Company Number: US-AMGEN-USASP2013044130

PATIENT
  Age: 46 Year
  Sex: Female
  Weight: 68.03 kg

DRUGS (3)
  1. ENBREL [Suspect]
     Indication: PSORIATIC ARTHROPATHY
     Dosage: UNK UNK, QWK
     Route: 065
     Dates: start: 201305, end: 201306
  2. MOTRIN [Concomitant]
     Indication: PAIN
     Dosage: UNK UNK, AS NEEDED
  3. TYLENOL                            /00020001/ [Concomitant]
     Indication: PAIN
     Dosage: UNK UNK, AS NEEDED

REACTIONS (5)
  - Injection site reaction [Unknown]
  - Injection site erythema [Not Recovered/Not Resolved]
  - Injection site rash [Not Recovered/Not Resolved]
  - Injection site urticaria [Not Recovered/Not Resolved]
  - Drug ineffective [Unknown]
